FAERS Safety Report 6193341-1 (Version None)
Quarter: 2009Q2

REPORT INFORMATION
  Report Type: 
  Country: None (occurrence: None)
  Receive Date: 20090518
  Receipt Date: 20090511
  Transmission Date: 20091009
  Serious: Yes (Other)
  Sender: FDA-Public Use
  Company Number: US-ASTRAZENECA-2009UW00598

PATIENT
  Age: 37 Year
  Sex: Female
  Weight: 86.2 kg

DRUGS (3)
  1. SEROQUEL [Suspect]
     Indication: SLEEP DISORDER
     Dosage: 100 TO 600 MG
     Route: 048
     Dates: start: 19980101, end: 20040101
  2. FLUOXETINE HCL [Concomitant]
     Dosage: 20 TO 40 MG
     Dates: start: 20060125, end: 20071103
  3. PROZAC [Concomitant]
     Dates: start: 19960101

REACTIONS (5)
  - BRONCHITIS [None]
  - DIABETES MELLITUS [None]
  - HYSTERECTOMY [None]
  - NEOPLASM MALIGNANT [None]
  - SUICIDE ATTEMPT [None]
